FAERS Safety Report 8580307-7 (Version None)
Quarter: 2012Q3

REPORT INFORMATION
  Report Type: 
  Country: None (occurrence: None)
  Receive Date: 20120808
  Receipt Date: 20120801
  Transmission Date: 20120928
  Serious: Yes (Disabling)
  Sender: FDA-Public Use
  Company Number: GB-PFIZER INC-2012186550

PATIENT
  Age: 54 Year
  Sex: Female
  Weight: 54.6 kg

DRUGS (3)
  1. TOLTERODINE TARTRATE [Suspect]
     Dosage: UNK
     Dates: start: 20120424, end: 20120615
  2. LEVOTHYROXINE SODIUM [Concomitant]
     Dosage: UNK
     Dates: start: 20120424
  3. VENTOLIN [Concomitant]
     Dosage: UNK
     Dates: start: 20120518, end: 20120615

REACTIONS (3)
  - HYPERTHYROIDISM [None]
  - EMOTIONAL DISORDER [None]
  - PALPITATIONS [None]
